FAERS Safety Report 6518509-3 (Version None)
Quarter: 2009Q4

REPORT INFORMATION
  Report Type: 
  Country: None (occurrence: None)
  Receive Date: 20091226
  Receipt Date: 20091217
  Transmission Date: 20100525
  Serious: Yes (Disabling, Other)
  Sender: FDA-Public Use
  Company Number: CH-JNJFOC-20091008638

PATIENT
  Sex: Female

DRUGS (1)
  1. RISPERDAL [Suspect]
     Indication: SCHIZOPHRENIA
     Dosage: 2-3 MG
     Route: 048

REACTIONS (1)
  - TYPE 2 DIABETES MELLITUS [None]
